FAERS Safety Report 4650358-3 (Version None)
Quarter: 2005Q2

REPORT INFORMATION
  Report Type: 
  Country: None (occurrence: None)
  Receive Date: 20050428
  Receipt Date: 20050418
  Transmission Date: 20051028
  Serious: Yes (Hospitalization)
  Sender: FDA-Public Use
  Company Number: D-05-013

PATIENT
  Age: 90 Year
  Sex: Female

DRUGS (5)
  1. JANTOVEN [Suspect]
     Indication: ATRIAL FIBRILLATION
     Dosage: 4 MG QD PO
     Route: 048
     Dates: start: 20050330
  2. WARFARIN SODIUM [Suspect]
     Indication: ATRIAL FIBRILLATION
     Dosage: 4. 5 MG QD PO
     Route: 048
     Dates: end: 20050329
  3. REQUIP [Concomitant]
  4. SINEMET [Concomitant]
  5. WELLBUTRIN [Concomitant]

REACTIONS (2)
  - CONTUSION [None]
  - HAEMORRHAGE [None]
